FAERS Safety Report 18105102 (Version 3)
Quarter: 2020Q4

REPORT INFORMATION
  Report Type: Spontaneous
  Country: US (occurrence: US)
  Receive Date: 20200804
  Receipt Date: 20201103
  Transmission Date: 20210113
  Serious: Yes (Hospitalization, Other)
  Sender: FDA-Public Use
  Company Number: US-DECIPHERA PHARMACEUTICALS LLC-2020-US-000302

PATIENT
  Sex: Female

DRUGS (4)
  1. ELIQUIS [Concomitant]
     Active Substance: APIXABAN
  2. QINLOCK [Suspect]
     Active Substance: RIPRETINIB
     Dosage: 150 MILLIGRAM, BID
     Route: 048
     Dates: start: 20200701
  3. QINLOCK [Suspect]
     Active Substance: RIPRETINIB
     Dosage: 150 MILLIGRAM, BID
     Route: 048
     Dates: start: 20200701
  4. QINLOCK [Suspect]
     Active Substance: RIPRETINIB
     Indication: GASTROINTESTINAL STROMAL TUMOUR
     Dosage: 150 MILLIGRAM, QD
     Route: 048

REACTIONS (16)
  - Neoplasm progression [Unknown]
  - Therapeutic response unexpected [Unknown]
  - Platelet count decreased [Not Recovered/Not Resolved]
  - Weight decreased [Unknown]
  - Anaemia [Unknown]
  - Transfusion [Unknown]
  - Night sweats [Unknown]
  - Swelling [Unknown]
  - Alopecia [Unknown]
  - Fatigue [Unknown]
  - Haemoglobin decreased [Recovering/Resolving]
  - Skin disorder [Unknown]
  - Procedural pain [Unknown]
  - Insomnia [Unknown]
  - Decreased appetite [Unknown]
  - Overdose [Unknown]
